FAERS Safety Report 13978628 (Version 1)
Quarter: 2017Q3

REPORT INFORMATION
  Report Type: Spontaneous
  Country: US (occurrence: US)
  Receive Date: 20170914
  Receipt Date: 20170914
  Transmission Date: 20171128
  Serious: Yes (Other)
  Sender: FDA-Public Use
  Company Number: US-ASTELLAS-2017US020887

PATIENT
  Age: 71 Year
  Sex: Male

DRUGS (17)
  1. HYDROCODONE [Concomitant]
     Active Substance: HYDROCODONE
     Indication: PRODUCT USED FOR UNKNOWN INDICATION
     Dosage: 5.325 G, EVERY 6 HOURS AS NEEDED
     Route: 065
  2. ZOFRAN [Concomitant]
     Active Substance: ONDANSETRON HYDROCHLORIDE
     Indication: PRODUCT USED FOR UNKNOWN INDICATION
     Dosage: 4 MG, EVERY 8 HOURS, AS NEEDED
  3. DILTIAZEM. [Concomitant]
     Active Substance: DILTIAZEM
     Indication: PRODUCT USED FOR UNKNOWN INDICATION
     Route: 065
  4. XTANDI [Suspect]
     Active Substance: ENZALUTAMIDE
     Dosage: UNK, UNKNOWN FREQ.
     Route: 065
     Dates: start: 20170209, end: 20170720
  5. LUPRON [Concomitant]
     Active Substance: LEUPROLIDE ACETATE
     Indication: METASTASIS
     Dosage: UNK UNK, MONTHLY
     Route: 065
  6. ASA [Concomitant]
     Active Substance: ASPIRIN
     Indication: PRODUCT USED FOR UNKNOWN INDICATION
     Route: 065
  7. KCL [Concomitant]
     Active Substance: POTASSIUM CHLORIDE
     Indication: PRODUCT USED FOR UNKNOWN INDICATION
     Dosage: 20 MCG, 2 G, ONCE DAILY
     Route: 065
  8. XTANDI [Suspect]
     Active Substance: ENZALUTAMIDE
     Indication: PROSTATE CANCER
     Route: 048
     Dates: start: 20160207
  9. ZYTIGA [Concomitant]
     Active Substance: ABIRATERONE ACETATE
     Route: 065
     Dates: start: 201512, end: 20170209
  10. ZYTIGA [Concomitant]
     Active Substance: ABIRATERONE ACETATE
     Indication: METASTASIS
     Dosage: UNK UNK, UNKNOWN FREQ.
     Route: 065
     Dates: start: 201512, end: 20170117
  11. CARDIA [Concomitant]
     Active Substance: AJMALINE
     Indication: PRODUCT USED FOR UNKNOWN INDICATION
     Route: 065
  12. MICARDIS HCT [Concomitant]
     Active Substance: HYDROCHLOROTHIAZIDE\TELMISARTAN
     Indication: PRODUCT USED FOR UNKNOWN INDICATION
     Route: 065
  13. VITAMIN D3 [Concomitant]
     Active Substance: CHOLECALCIFEROL
     Indication: PRODUCT USED FOR UNKNOWN INDICATION
     Dosage: 2000 UNITS, ONCE DAILY
     Route: 065
  14. FLONASE                            /00908302/ [Concomitant]
     Active Substance: MOMETASONE FUROATE
     Indication: PRODUCT USED FOR UNKNOWN INDICATION
     Dosage: UNK UNK, AT BEDTIME
     Route: 065
  15. PRAVACHOL [Concomitant]
     Active Substance: PRAVASTATIN SODIUM
     Indication: PRODUCT USED FOR UNKNOWN INDICATION
     Route: 065
  16. XGEVA [Concomitant]
     Active Substance: DENOSUMAB
     Indication: METASTASIS
     Dosage: UNK UNK, MONTHLY
     Route: 065
  17. PREDNISONE. [Concomitant]
     Active Substance: PREDNISONE
     Indication: METASTASIS
     Dosage: UNK UNK, UNKNOWN FREQ.
     Route: 065
     Dates: start: 201512, end: 20170117

REACTIONS (2)
  - Malignant neoplasm progression [Unknown]
  - Peripheral swelling [Recovered/Resolved]
